FAERS Safety Report 5447154-6 (Version None)
Quarter: 2007Q3

REPORT INFORMATION
  Report Type: 
  Country: None (occurrence: None)
  Receive Date: 20070910
  Receipt Date: 20070831
  Transmission Date: 20080115
  Serious: Yes (Hospitalization, Other)
  Sender: FDA-Public Use
  Company Number: PHBS2007BR14622

PATIENT
  Sex: Male
  Weight: 75 kg

DRUGS (4)
  1. DIOVAN HCT [Suspect]
     Indication: HYPERTENSION
     Dosage: VALS 160 / HCT 25 MG/DAY
     Route: 048
  2. DIOVAN HCT [Suspect]
     Dosage: 160 MG/HCT 25 MG TWICE WEEKLY
     Route: 048
     Dates: start: 20070701
  3. DIOVAN HCT [Suspect]
     Dosage: VALS 160 / HCT 25 MG, PRN
     Route: 048
  4. DIOVAN HCT [Suspect]
     Dosage: VALS 80 / HCT 12.5 MG/DAY
     Route: 048
     Dates: start: 20070820

REACTIONS (4)
  - ABDOMINAL PAIN UPPER [None]
  - BLOOD PRESSURE INCREASED [None]
  - GASTRITIS [None]
  - OESOPHAGITIS [None]
